FAERS Safety Report 9457577 (Version 1)
Quarter: 2013Q3

REPORT INFORMATION
  Report Type: Spontaneous
  Country: US (occurrence: US)
  Receive Date: 20130814
  Receipt Date: 20130814
  Transmission Date: 20140515
  Serious: No
  Sender: FDA-Public Use
  Company Number: US-JNJFOC-20130717091

PATIENT
  Sex: Male

DRUGS (1)
  1. INVEGA [Suspect]
     Indication: OBSESSIVE THOUGHTS
     Dosage: HALF OF 3 MF TABLET
     Route: 048

REACTIONS (5)
  - Wrong technique in drug usage process [Unknown]
  - Nausea [Unknown]
  - Headache [Unknown]
  - Restlessness [Unknown]
  - Irritability [Unknown]
